FAERS Safety Report 6558697-6 (Version None)
Quarter: 2010Q1

REPORT INFORMATION
  Report Type: 
  Country: None (occurrence: None)
  Receive Date: 20100129
  Receipt Date: 20100120
  Transmission Date: 20100710
  Serious: Yes (Other)
  Sender: FDA-Public Use
  Company Number: GR-PFIZER INC-2009307014

PATIENT
  Age: 71 Year
  Sex: Female

DRUGS (1)
  1. VFEND [Suspect]
     Dosage: UNK
     Route: 048
     Dates: start: 20091201, end: 20091206

REACTIONS (2)
  - COLOUR BLINDNESS [None]
  - VISION BLURRED [None]
